FAERS Safety Report 13571712 (Version 1)
Quarter: 2017Q2

REPORT INFORMATION
  Report Type: Spontaneous
  Country: US (occurrence: US)
  Receive Date: 20170522
  Receipt Date: 20170522
  Transmission Date: 20170830
  Serious: No
  Sender: FDA-Public Use
  Company Number: None

PATIENT
  Age: 70 Year
  Sex: Male
  Weight: 94 kg

DRUGS (1)
  1. GABAPENTIN. [Suspect]
     Active Substance: GABAPENTIN
     Indication: PAIN
     Route: 048
     Dates: start: 20131031, end: 20150430

REACTIONS (7)
  - Flatulence [None]
  - Feeling drunk [None]
  - Abdominal pain upper [None]
  - Metamorphopsia [None]
  - Photopsia [None]
  - Sedation [None]
  - Tremor [None]

NARRATIVE: CASE EVENT DATE: 20140227
